FAERS Safety Report 25736955 (Version 1)
Quarter: 2025Q3

REPORT INFORMATION
  Report Type: Spontaneous
  Country: US (occurrence: US)
  Receive Date: 20250828
  Receipt Date: 20250828
  Transmission Date: 20251020
  Serious: Yes (Other)
  Sender: PFIZER
  Company Number: US-PFIZER INC-PV202500103135

PATIENT
  Age: 81 Year
  Sex: Female

DRUGS (10)
  1. XELJANZ [Suspect]
     Active Substance: TOFACITINIB CITRATE
  2. NORVASC [Concomitant]
     Active Substance: AMLODIPINE BESYLATE
  3. ORENCIA [Concomitant]
     Active Substance: ABATACEPT
  4. VITAMIN D3 [Concomitant]
     Active Substance: CHOLECALCIFEROL
  5. PEPCID [Concomitant]
     Active Substance: FAMOTIDINE
  6. SYNTHROID [Concomitant]
     Active Substance: LEVOTHYROXINE SODIUM
  7. COZAAR [Concomitant]
     Active Substance: LOSARTAN POTASSIUM
  8. VESICARE [Concomitant]
     Active Substance: SOLIFENACIN SUCCINATE
  9. NEURONTIN [Concomitant]
     Active Substance: GABAPENTIN
  10. ANTIVERT [Concomitant]
     Active Substance: MECLIZINE HYDROCHLORIDE

REACTIONS (1)
  - Thrombocytopenia [Unknown]
